FAERS Safety Report 24639504 (Version 1)
Quarter: 2024Q4

REPORT INFORMATION
  Report Type: Spontaneous
  Country: US (occurrence: US)
  Receive Date: 20241119
  Receipt Date: 20241119
  Transmission Date: 20250115
  Serious: Yes (Other)
  Sender: ALVOGEN
  Company Number: US-ALVOGEN-2024093135

PATIENT
  Sex: Female

DRUGS (1)
  1. TERIPARATIDE [Suspect]
     Active Substance: TERIPARATIDE
     Indication: Osteoporosis
     Dosage: 250MCG/ML, 20MCG DAILY
     Route: 058
     Dates: start: 202204

REACTIONS (1)
  - Nephrolithiasis [Recovered/Resolved]
